FAERS Safety Report 6400366-7 (Version None)
Quarter: 2009Q4

REPORT INFORMATION
  Report Type: 
  Country: None (occurrence: None)
  Receive Date: 20091014
  Receipt Date: 20091007
  Transmission Date: 20100525
  Serious: Yes (Other)
  Sender: FDA-Public Use
  Company Number: US-ABBOTT-09P-163-0601304-00

PATIENT
  Sex: Female
  Weight: 65.83 kg

DRUGS (4)
  1. SYNTHROID [Suspect]
     Indication: HYPOTHYROIDISM
     Dates: start: 20090401, end: 20090929
  2. PROMETRIUM [Suspect]
     Indication: MENORRHAGIA
     Dates: start: 20090101, end: 20090901
  3. PROTONIX [Concomitant]
     Indication: DRUG USE FOR UNKNOWN INDICATION
  4. PREMARIN [Concomitant]
     Indication: HORMONE REPLACEMENT THERAPY

REACTIONS (4)
  - MENORRHAGIA [None]
  - UTERINE LEIOMYOMA [None]
  - UTERINE POLYP [None]
  - VISION BLURRED [None]
